FAERS Safety Report 14198481 (Version 1)
Quarter: 2017Q4

REPORT INFORMATION
  Report Type: Spontaneous
  Country: US (occurrence: US)
  Receive Date: 20171117
  Receipt Date: 20171117
  Transmission Date: 20180321
  Serious: Yes (Hospitalization)
  Sender: FDA-Public Use
  Company Number: US-BION-006758

PATIENT
  Age: 7 Day
  Sex: Female

DRUGS (1)
  1. ALEVE [Suspect]
     Active Substance: NAPROXEN SODIUM
     Indication: PAIN
     Dosage: 1 GEL CAPLET EVERY 8-10 HOURS
     Dates: start: 20171029, end: 20171105

REACTIONS (3)
  - Chest pain [Recovering/Resolving]
  - Panic attack [Recovering/Resolving]
  - Anxiety [Recovering/Resolving]

NARRATIVE: CASE EVENT DATE: 20171101
